FAERS Safety Report 5414701-X (Version None)
Quarter: 2007Q3

REPORT INFORMATION
  Report Type: 
  Country: None (occurrence: None)
  Receive Date: 20070713
  Receipt Date: 20070426
  Transmission Date: 20080115
  Serious: Yes (Hospitalization)
  Sender: FDA-Public Use
  Company Number: US-JNJFOC-20061206648

PATIENT
  Age: 33 Year
  Sex: Female
  Weight: 77.1115 kg

DRUGS (3)
  1. ORTHO EVRA [Suspect]
     Indication: CONTRACEPTION
     Dosage: 1 DOSE(S), 3 IN 4 WEEK, TRANSDERMAL
     Dates: start: 20021001, end: 20030101
  2. AMBIEN (ZOLPIDEM TARTRATE) UNSPECIFIED [Concomitant]
  3. LEXAPRO (SSRI) UNSPECIFIED [Concomitant]

REACTIONS (1)
  - PULMONARY EMBOLISM [None]
